FAERS Safety Report 19579151 (Version 3)
Quarter: 2021Q3

REPORT INFORMATION
  Report Type: Report from Study
  Country: US (occurrence: US)
  Receive Date: 20210720
  Receipt Date: 20210903
  Transmission Date: 20211014
  Serious: Yes (Other)
  Sender: FDA-Public Use
  Company Number: US-ACADIA PHARMACEUTICALS INC.-ACA-2021-PIM-002393

PATIENT
  Sex: Female
  Weight: 63.49 kg

DRUGS (1)
  1. NUPLAZID [Suspect]
     Active Substance: PIMAVANSERIN TARTRATE
     Indication: PARKINSON^S DISEASE
     Dosage: 34 MILLIGRAM, QD
     Route: 048
     Dates: start: 20210511

REACTIONS (8)
  - Mental impairment [Not Recovered/Not Resolved]
  - Patient elopement [Unknown]
  - Dizziness [Not Recovered/Not Resolved]
  - Hallucinations, mixed [Not Recovered/Not Resolved]
  - Dysgraphia [Not Recovered/Not Resolved]
  - Hallucination [Not Recovered/Not Resolved]
  - Weight increased [Not Recovered/Not Resolved]
  - Paranoia [Unknown]
